FAERS Safety Report 7003975-X (Version None)
Quarter: 2010Q3

REPORT INFORMATION
  Report Type: 
  Country: None (occurrence: None)
  Receive Date: 20100917
  Receipt Date: 20100901
  Transmission Date: 20110219
  Serious: Yes (Hospitalization, Other)
  Sender: FDA-Public Use
  Company Number: 2010003328

PATIENT
  Age: 61 Year
  Sex: Female

DRUGS (3)
  1. ERLOTINIB HYDROCHLORIDE [Suspect]
     Indication: PANCREATIC CARCINOMA METASTATIC
     Dosage: 100 MG, ORAL
     Route: 048
     Dates: start: 20100714, end: 20100826
  2. GEMCITABINE [Suspect]
     Indication: PANCREATIC CARCINOMA METASTATIC
     Dosage: 1000 MG, INTRAVENOUS
     Route: 042
     Dates: start: 20100714, end: 20100826
  3. DEXAMETHASONE [Suspect]
     Indication: PRODUCT USED FOR UNKNOWN INDICATION

REACTIONS (13)
  - ADENOCARCINOMA PANCREAS [None]
  - CYSTITIS [None]
  - DEHYDRATION [None]
  - GALLBLADDER OBSTRUCTION [None]
  - HYPERGLYCAEMIA [None]
  - HYPONATRAEMIA [None]
  - INFECTION [None]
  - INSOMNIA [None]
  - JAUNDICE CHOLESTATIC [None]
  - MALIGNANT NEOPLASM PROGRESSION [None]
  - NEUTROPHIL COUNT ABNORMAL [None]
  - PYELONEPHRITIS [None]
  - URINARY TRACT INFECTION [None]
